FAERS Safety Report 23111801 (Version 3)
Quarter: 2023Q4

REPORT INFORMATION
  Report Type: Spontaneous
  Country: US (occurrence: US)
  Receive Date: 20231026
  Receipt Date: 20231128
  Transmission Date: 20240110
  Serious: Yes (Other)
  Sender: FDA-Public Use
  Company Number: US-UPSHER-SMITH LABORATORIES, LLC-2023USL00885

PATIENT
  Age: 24 Year
  Sex: Female

DRUGS (2)
  1. ISOTRETINOIN [Suspect]
     Active Substance: ISOTRETINOIN
     Dosage: 30 MG, 2X/DAY (TAKEN IN CONJUNCTION WITH 40 MG CAPSULE FOR TOTAL DAILY DOSE OF 100 MG)
     Dates: start: 20230915, end: 20231012
  2. ISOTRETINOIN [Suspect]
     Active Substance: ISOTRETINOIN
     Dosage: 40 MG, 1X/DAY (TAKEN IN CONJUNCTION WITH 30 MG CAPSULE FOR TOTAL DAILY DOSE OF 100 MG)
     Dates: start: 20230915, end: 20231012

REACTIONS (1)
  - Exposure during pregnancy [Not Recovered/Not Resolved]

NARRATIVE: CASE EVENT DATE: 20230926
